FAERS Safety Report 6489639-X (Version None)
Quarter: 2009Q4

REPORT INFORMATION
  Report Type: 
  Country: None (occurrence: None)
  Receive Date: 20091210
  Receipt Date: 20091126
  Transmission Date: 20100525
  Serious: Yes (Death, Hospitalization)
  Sender: FDA-Public Use
  Company Number: GB-GENENTECH-295551

PATIENT
  Sex: Female
  Weight: 50 kg

DRUGS (22)
  1. RITUXIMAB [Suspect]
     Indication: DIFFUSE LARGE B-CELL LYMPHOMA
     Dosage: 600 MG, QAM
     Route: 042
     Dates: start: 20091014, end: 20091014
  2. GEMCITABINE [Suspect]
     Indication: DIFFUSE LARGE B-CELL LYMPHOMA
     Dosage: 1558 MG, QAM
     Route: 042
     Dates: start: 20091014, end: 20091014
  3. CYCLOPHOSPHAMIDE [Suspect]
     Indication: DIFFUSE LARGE B-CELL LYMPHOMA
     Dosage: 880 MG, QAM
     Route: 042
     Dates: start: 20091014, end: 20091014
  4. VINCRISTINE [Suspect]
     Indication: DIFFUSE LARGE B-CELL LYMPHOMA
     Dosage: 2 MG, QAM
     Route: 042
     Dates: start: 20091014, end: 20091014
  5. PREDNISOLONE [Suspect]
     Indication: DIFFUSE LARGE B-CELL LYMPHOMA
     Dosage: 100 MG, QAM
     Route: 048
     Dates: start: 20091014, end: 20091018
  6. NEULASTA [Suspect]
     Indication: DIFFUSE LARGE B-CELL LYMPHOMA
     Dosage: 6 MG, QAM
     Route: 058
     Dates: start: 20091022, end: 20091022
  7. PARACETAMOL [Concomitant]
     Indication: ANALGESIC THERAPY
     Dosage: 1 G, UNK
     Route: 048
     Dates: start: 20091021, end: 20091028
  8. LEVOTHYROXINE SODIUM [Concomitant]
     Indication: HYPOTHYROIDISM
     Dosage: 75 A?G, QAM
     Route: 048
     Dates: start: 20091022, end: 20091105
  9. FORTISIP [Concomitant]
     Indication: DECREASED APPETITE
     Dosage: DRUG NAME: FORTISIPS
     Route: 048
     Dates: start: 20091022, end: 20091105
  10. LANSOPRAZOLE [Concomitant]
     Indication: PROPHYLACTIC CHEMOTHERAPY
     Dosage: 30 MG, QAM
     Route: 048
     Dates: start: 20091022, end: 20091101
  11. ASPIRIN [Concomitant]
     Indication: CARDIAC DISORDER
     Dosage: 75 MG, QAM
     Route: 048
     Dates: start: 20091022, end: 20091106
  12. BENDROFLUMETHIAZIDE [Concomitant]
     Indication: HYPERTENSION
     Dosage: 2.5 MG, QAM
     Route: 048
     Dates: start: 20091022, end: 20091101
  13. CHLORHEXIDINE GLUCONATE [Concomitant]
     Indication: PROPHYLAXIS
     Dosage: 10 ML, QID
     Route: 048
     Dates: start: 20091022, end: 20091106
  14. FLUCONAZOLE [Concomitant]
     Indication: PROPHYLACTIC CHEMOTHERAPY
     Dosage: 100 MG, QAM
     Route: 048
     Dates: start: 20091022, end: 20091104
  15. QUININE SULPHATE [Concomitant]
     Indication: DRUG USE FOR UNKNOWN INDICATION
     Dosage: 100 MG, QAM
     Route: 048
     Dates: start: 20091021, end: 20091101
  16. ALLOPURINOL [Concomitant]
     Indication: PROPHYLACTIC CHEMOTHERAPY
     Dosage: 300 MG, QAM
     Route: 048
     Dates: start: 20091021, end: 20091021
  17. ROSUVASTATIN [Concomitant]
     Indication: HYPERCHOLESTEROLAEMIA
     Dosage: 10 MG, QAM
     Route: 048
     Dates: start: 20091022, end: 20091101
  18. EZETIMIBE [Concomitant]
     Indication: HYPERCHOLESTEROLAEMIA
     Dosage: 10 MG, QAM
     Route: 048
     Dates: start: 20091022, end: 20091101
  19. DILTIAZEM [Concomitant]
     Dosage: 300 MG, QAM
     Route: 048
     Dates: start: 20091022, end: 20091101
  20. LOSARTAN [Concomitant]
     Indication: HYPERTENSION
     Dosage: 100 MG, BID
     Route: 048
     Dates: start: 20091022, end: 20091031
  21. LACTULOSE [Concomitant]
     Indication: CONSTIPATION
     Dosage: 15 ML, BID
     Route: 048
     Dates: start: 20091021, end: 20091024
  22. CO-TRIMAZOL [Concomitant]
     Indication: PROPHYLACTIC CHEMOTHERAPY
     Dosage: 480 MG, MWF
     Dates: start: 20091022, end: 20091106

REACTIONS (2)
  - ENTEROCOLITIS INFECTIOUS [None]
  - INFECTION [None]
